FAERS Safety Report 16047873 (Version 2)
Quarter: 2019Q2

REPORT INFORMATION
  Report Type: Spontaneous
  Country: AU (occurrence: AU)
  Receive Date: 20190307
  Receipt Date: 20190517
  Transmission Date: 20190711
  Serious: Yes (Death, Hospitalization)
  Sender: FDA-Public Use
  Company Number: AU-ACTELION-A-CH2019-186880

PATIENT
  Age: 68 Year
  Sex: Male

DRUGS (1)
  1. OPSUMIT [Suspect]
     Active Substance: MACITENTAN
     Indication: PULMONARY ARTERIAL HYPERTENSION
     Dosage: 10 MG, QD
     Route: 048
     Dates: start: 20180904, end: 20190223

REACTIONS (4)
  - Pneumonia [Fatal]
  - Disease progression [Fatal]
  - Pulmonary arterial hypertension [Fatal]
  - Hypoxia [Fatal]

NARRATIVE: CASE EVENT DATE: 201902
